FAERS Safety Report 17669814 (Version 1)
Quarter: 2020Q2

REPORT INFORMATION
  Report Type: Spontaneous
  Country: US (occurrence: US)
  Receive Date: 20200415
  Receipt Date: 20200415
  Transmission Date: 20200713
  Serious: No
  Sender: FDA-Public Use
  Company Number: US-GLENMARK PHARMACEUTICALS-2019GMK044352

PATIENT

DRUGS (2)
  1. PRAMIPEXOLE DIHYDROCHLORIDE. [Suspect]
     Active Substance: PRAMIPEXOLE DIHYDROCHLORIDE
     Indication: RESTLESS LEGS SYNDROME
     Dosage: APPROXIMATELY 2.5 PILLS AVERAGE; 1 TO 3 TABLETS BY MOUTH (1 TO 2 TIMES PER DAY)
     Route: 048
     Dates: start: 20160822, end: 20181229
  2. PERCOCET [Concomitant]
     Active Substance: ACETAMINOPHEN\OXYCODONE HYDROCHLORIDE
     Indication: PAIN
     Dosage: UNK
     Route: 065

REACTIONS (5)
  - Therapeutic product effect variable [Unknown]
  - Arthritis [Unknown]
  - Back pain [Unknown]
  - Posture abnormal [Unknown]
  - Fall [Unknown]

NARRATIVE: CASE EVENT DATE: 2017
